FAERS Safety Report 25287323 (Version 1)
Quarter: 2025Q2

REPORT INFORMATION
  Report Type: Spontaneous
  Country: JP (occurrence: JP)
  Receive Date: 20250509
  Receipt Date: 20250509
  Transmission Date: 20250717
  Serious: Yes (Hospitalization, Other)
  Sender: NEXUS PHARMACEUTICALS
  Company Number: JP-Nexus Pharma-000399

PATIENT
  Age: 3 Decade
  Sex: Male

DRUGS (7)
  1. LEVETIRACETAM [Suspect]
     Active Substance: LEVETIRACETAM
     Indication: Status epilepticus
  2. FLUNITRAZEPAM [Concomitant]
     Active Substance: FLUNITRAZEPAM
  3. LORAZEPAM [Concomitant]
     Active Substance: LORAZEPAM
  4. TRIAZOLAM [Concomitant]
     Active Substance: TRIAZOLAM
  5. VALPROIC ACID [Concomitant]
     Active Substance: VALPROIC ACID
  6. MIDAZOLAM [Concomitant]
     Active Substance: MIDAZOLAM
     Indication: Sedation
  7. AMPICILLIN SODIUM\SULBACTAM SODIUM [Concomitant]
     Active Substance: AMPICILLIN SODIUM\SULBACTAM SODIUM
     Indication: Pneumonia aspiration

REACTIONS (2)
  - Rhabdomyolysis [Recovered/Resolved]
  - Anticonvulsant drug level below therapeutic [Unknown]
